FAERS Safety Report 9188609 (Version 1)
Quarter: 2013Q1

REPORT INFORMATION
  Report Type: Spontaneous
  Country: CO (occurrence: CO)
  Receive Date: 20130325
  Receipt Date: 20130325
  Transmission Date: 20140127
  Serious: Yes (Other)
  Sender: FDA-Public Use
  Company Number: CO-PFIZER INC-2013090290

PATIENT
  Age: 17 Year
  Sex: Female

DRUGS (10)
  1. GENOTROPIN [Suspect]
     Indication: BODY HEIGHT BELOW NORMAL
     Dosage: 1.2 MG, 1X/DAY
     Route: 058
     Dates: start: 2000, end: 2010
  2. GENOTROPIN [Suspect]
     Indication: OBESITY
     Dosage: 1.2 MG, 1X/DAY
     Route: 058
  3. LOVASTATIN [Concomitant]
     Indication: OBESITY
     Dosage: 20 MG, 2X/DAY
     Route: 048
     Dates: start: 2011
  4. LOVASTATIN [Concomitant]
     Indication: BODY HEIGHT BELOW NORMAL
  5. METFORMIN [Concomitant]
     Indication: OBESITY
     Dosage: 850 MG, 2 TABLETS AND HALF DAILY
     Route: 048
     Dates: start: 2008
  6. METFORMIN [Concomitant]
     Indication: BODY HEIGHT BELOW NORMAL
  7. KEPPRA [Concomitant]
     Indication: PSYCHOTIC DISORDER
     Dosage: 500 MG, 2 TABLETS AT MORNING AND 2 TABLETS AT NIGHT
     Route: 048
     Dates: start: 201005
  8. TEGRETOL [Concomitant]
     Indication: PSYCHOTIC DISORDER
     Dosage: 200 MG, 2X/DAY
     Route: 048
     Dates: start: 2012
  9. RISPERDAL [Concomitant]
     Dosage: 1 MG, 3X/DAY
  10. FLUOXETINE [Concomitant]
     Indication: PSYCHOTIC DISORDER
     Dosage: 20 MG, UNK

REACTIONS (3)
  - Neuropsychiatric syndrome [Unknown]
  - Injection site bruising [Recovered/Resolved]
  - Off label use [Unknown]
